FAERS Safety Report 10363136 (Version 10)
Quarter: 2015Q2

REPORT INFORMATION
  Report Type: Report from Study
  Country: US (occurrence: US)
  Receive Date: 20140805
  Receipt Date: 20150501
  Transmission Date: 20150821
  Serious: Yes (Other)
  Sender: FDA-Public Use
  Company Number: US-SA-2014SA100337

PATIENT
  Age: 48 Year
  Sex: Female

DRUGS (17)
  1. LOSARTAN POTASSIUM. [Concomitant]
     Active Substance: LOSARTAN POTASSIUM
     Dosage: 100 MG
  2. TOPIRAMATE. [Concomitant]
     Active Substance: TOPIRAMATE
     Dosage: 50 MG
  3. THYME. [Concomitant]
     Active Substance: THYME
  4. AUBAGIO [Suspect]
     Active Substance: TERIFLUNOMIDE
     Indication: MULTIPLE SCLEROSIS
     Route: 048
  5. CYCLOBENZAPRINE HYDROCHLORIDE. [Concomitant]
     Active Substance: CYCLOBENZAPRINE HYDROCHLORIDE
     Dosage: 10 MG
  6. OSTEO BI-FLEX [Concomitant]
     Active Substance: CHONDROITIN SULFATE A\GLUCOSAMINE
     Dosage: 1500MG-400 TABLET
  7. VITAMIN D [Concomitant]
     Active Substance: CHOLECALCIFEROL
     Dosage: 1000 UNIT DOSE:1000 UNIT(S)
  8. SUCRALFATE. [Concomitant]
     Active Substance: SUCRALFATE
     Dosage: 1 G
  9. PLAQUENIL [Concomitant]
     Active Substance: HYDROXYCHLOROQUINE SULFATE
     Dosage: 200 MG
  10. NEUPRO [Concomitant]
     Active Substance: ROTIGOTINE
     Dosage: 2MG/24 HR PATCH TD24
  11. ASPIRIN. [Concomitant]
     Active Substance: ASPIRIN
     Dosage: 81 MG TABLET  CHEW
  12. GRALISE [Concomitant]
     Active Substance: GABAPENTIN
     Dosage: 600 MG TAB ER 24 H
  13. PREDNISONE. [Concomitant]
     Active Substance: PREDNISONE
     Dosage: 1 MG
  14. AUBAGIO [Suspect]
     Active Substance: TERIFLUNOMIDE
     Indication: MULTIPLE SCLEROSIS
     Route: 048
     Dates: start: 20140701, end: 20140923
  15. AUBAGIO [Suspect]
     Active Substance: TERIFLUNOMIDE
     Indication: MULTIPLE SCLEROSIS
     Route: 048
     Dates: start: 201410
  16. ZANTAC [Concomitant]
     Active Substance: RANITIDINE HYDROCHLORIDE
     Dosage: 150 MG
  17. FISH OIL [Concomitant]
     Active Substance: FISH OIL
     Dosage: 1000 MG

REACTIONS (16)
  - Gastric infection [Unknown]
  - Feeling abnormal [Unknown]
  - Nausea [Recovered/Resolved]
  - Headache [Unknown]
  - Diarrhoea [Recovered/Resolved]
  - Alopecia [Recovered/Resolved]
  - Road traffic accident [Unknown]
  - Malaise [Unknown]
  - Central nervous system lesion [Unknown]
  - Rheumatoid arthritis [Unknown]
  - Thinking abnormal [Unknown]
  - Migraine [Unknown]
  - Abdominal pain upper [Recovered/Resolved]
  - Hypoaesthesia [Not Recovered/Not Resolved]
  - Stress [Unknown]
  - Drug dose omission [Unknown]

NARRATIVE: CASE EVENT DATE: 20140703
